FAERS Safety Report 5221666-2 (Version None)
Quarter: 2007Q1

REPORT INFORMATION
  Report Type: 
  Country: None (occurrence: None)
  Receive Date: 20070126
  Receipt Date: 20070126
  Transmission Date: 20070707
  Serious: No
  Sender: FDA-Public Use
  Company Number: None

PATIENT
  Age: 50 Year
  Sex: Male
  Weight: 103.4201 kg

DRUGS (3)
  1. OXYCODONE  10MG     WATSON [Suspect]
     Indication: ATROPHY
     Dosage: 1 TAB  QD  PO
     Route: 048
  2. OXYCODONE  10MG     WATSON [Suspect]
     Indication: NERVE INJURY
     Dosage: 1 TAB  QD  PO
     Route: 048
  3. OXYCODONE  10MG     WATSON [Suspect]
     Indication: OSTEOARTHRITIS
     Dosage: 1 TAB  QD  PO
     Route: 048

REACTIONS (3)
  - DRUG INEFFECTIVE [None]
  - PHARMACEUTICAL PRODUCT COMPLAINT [None]
  - POOR QUALITY DRUG ADMINISTERED [None]
